FAERS Safety Report 10196153 (Version 2)
Quarter: 2014Q2

REPORT INFORMATION
  Report Type: Spontaneous
  Country: IT (occurrence: IT)
  Receive Date: 20140527
  Receipt Date: 20140612
  Transmission Date: 20141212
  Serious: Yes (Hospitalization)
  Sender: FDA-Public Use
  Company Number: IT-JNJFOC-20140512109

PATIENT
  Age: 64 Year
  Sex: Female
  Weight: 75 kg

DRUGS (8)
  1. PALEXIA 50 MG COMPRESSE A RILASCIO PROLUNGATO [Suspect]
     Indication: PAIN
     Route: 048
     Dates: start: 20140424, end: 20140503
  2. RAMIPRIL [Concomitant]
     Indication: HYPERTENSION
     Route: 048
  3. ATENOLOL/CHLORTHALIDONE [Concomitant]
     Indication: HYPERTENSION
     Route: 048
  4. ESOMEPRAZOLE SODIUM [Concomitant]
     Indication: GASTROOESOPHAGEAL REFLUX DISEASE
     Route: 048
  5. ALPRAZOLAM [Concomitant]
     Indication: PRODUCT USED FOR UNKNOWN INDICATION
     Route: 048
  6. TRIAZOLAM [Concomitant]
     Indication: PRODUCT USED FOR UNKNOWN INDICATION
     Route: 048
  7. CYMBALTA [Concomitant]
     Indication: DEPRESSION
     Route: 048
     Dates: start: 20140424, end: 20140503
  8. NORMIX [Concomitant]
     Indication: DIVERTICULUM
     Route: 048

REACTIONS (6)
  - Head injury [Recovering/Resolving]
  - Pollakiuria [Recovering/Resolving]
  - Vertigo [Recovering/Resolving]
  - Nausea [Recovering/Resolving]
  - Fall [Recovering/Resolving]
  - Balance disorder [Recovering/Resolving]
